FAERS Safety Report 4390295-5 (Version None)
Quarter: 2004Q2

REPORT INFORMATION
  Report Type: 
  Country: None (occurrence: None)
  Receive Date: 20040630
  Receipt Date: 20040624
  Transmission Date: 20050107
  Serious: Yes (Other)
  Sender: FDA-Public Use
  Company Number: GBWYE850924JUN04

PATIENT
  Sex: Female

DRUGS (2)
  1. EFFEXOR [Suspect]
     Dosage: 75 MG 3X PER 1 DAY
     Route: 048
  2. EFEXOR XL (VENLAFAXINE HYDROCHLORIDE, EXTENDED ) [Suspect]
     Dosage: 225 MG 1X PER 1 DAY
     Route: 048

REACTIONS (1)
  - PARKINSONISM [None]
